FAERS Safety Report 5123330-7 (Version None)
Quarter: 2006Q4

REPORT INFORMATION
  Report Type: 
  Country: None (occurrence: None)
  Receive Date: 20061005
  Receipt Date: 20060918
  Transmission Date: 20070319
  Serious: No
  Sender: FDA-Public Use
  Company Number: 230097M06FRA

PATIENT
  Age: 19 Year
  Sex: Female

DRUGS (1)
  1. REBIF [Suspect]

REACTIONS (1)
  - EPILEPSY [None]
